FAERS Safety Report 26094735 (Version 1)
Quarter: 2025Q4

REPORT INFORMATION
  Report Type: Spontaneous
  Country: US (occurrence: US)
  Receive Date: 20251126
  Receipt Date: 20251126
  Transmission Date: 20260117
  Serious: Yes (Hospitalization, Other)
  Sender: JOHNSON AND JOHNSON
  Company Number: US-JNJFOC-20251160149

PATIENT
  Sex: Male

DRUGS (2)
  1. ZYTIGA [Suspect]
     Active Substance: ABIRATERONE ACETATE
     Indication: Prostate cancer recurrent
     Route: 048
     Dates: start: 202403
  2. PREDNISONE [Suspect]
     Active Substance: PREDNISONE
     Indication: Product used for unknown indication
     Route: 065
     Dates: start: 202403

REACTIONS (8)
  - Cardiac failure congestive [Unknown]
  - Prostate cancer recurrent [Unknown]
  - Dizziness [Unknown]
  - Fluid retention [Unknown]
  - Hypertension [Unknown]
  - Arthralgia [Unknown]
  - Heart rate decreased [Unknown]
  - Product dose omission issue [Unknown]
